FAERS Safety Report 4865605-2 (Version None)
Quarter: 2005Q4

REPORT INFORMATION
  Report Type: 
  Country: None (occurrence: None)
  Receive Date: 20051220
  Receipt Date: 20051213
  Transmission Date: 20060501
  Serious: Yes (Hospitalization)
  Sender: FDA-Public Use
  Company Number: 2005168294

PATIENT
  Age: 86 Year
  Sex: Male
  Weight: 69.4003 kg

DRUGS (8)
  1. CELEBREX [Suspect]
     Indication: ARTHRITIS
     Dosage: 200 MG (200 MG, 1 IN 1 D), ORAL
     Route: 048
     Dates: end: 20051101
  2. NAMENDA [Concomitant]
  3. ASPIRIN [Concomitant]
  4. CALCIUM (CALCIUM) [Concomitant]
  5. FOSAMAX [Concomitant]
  6. METOPROLOL SUCCINATE [Concomitant]
  7. ALL OTHER THERAPEUTIC PRODUCTS (ALL OTHER THERAPEUTIC PRODUCTS) [Concomitant]
  8. VITAMINS (VITAMINS) [Concomitant]

REACTIONS (1)
  - CARDIAC DISORDER [None]
